FAERS Safety Report 4739041-3 (Version None)
Quarter: 2005Q3

REPORT INFORMATION
  Report Type: 
  Country: None (occurrence: None)
  Receive Date: 20050801
  Receipt Date: 20050321
  Transmission Date: 20060218
  Serious: Yes (Other)
  Sender: FDA-Public Use
  Company Number: 211993

PATIENT
  Sex: Male

DRUGS (1)
  1. RITUXAN [Suspect]

REACTIONS (1)
  - INTERSTITIAL LUNG DISEASE [None]
